FAERS Safety Report 8310190-6 (Version None)
Quarter: 2012Q2

REPORT INFORMATION
  Report Type: 
  Country: None (occurrence: None)
  Receive Date: 20120425
  Receipt Date: 20120423
  Transmission Date: 20120825
  Serious: Yes (Death, Congenital Anomaly, Other)
  Sender: FDA-Public Use
  Company Number: CA-ABBOTT-11P-028-0835942-00

PATIENT
  Sex: Female

DRUGS (1)
  1. HUMIRA [Suspect]
     Indication: MATERNAL EXPOSURE TIMING UNSPECIFIED
     Route: 064

REACTIONS (4)
  - TURNER'S SYNDROME [None]
  - CYSTIC LYMPHANGIOMA [None]
  - ABORTION INDUCED [None]
  - FOETAL EXPOSURE DURING PREGNANCY [None]
